FAERS Safety Report 5613975-X (Version None)
Quarter: 2008Q1

REPORT INFORMATION
  Report Type: 
  Country: None (occurrence: None)
  Receive Date: 20080205
  Receipt Date: 20080125
  Transmission Date: 20080703
  Serious: Yes (Hospitalization)
  Sender: FDA-Public Use
  Company Number: JP-MERCK-0801USA03474

PATIENT
  Age: 57 Year
  Sex: Male

DRUGS (4)
  1. PROPECIA [Suspect]
     Indication: ANDROGENETIC ALOPECIA
     Route: 048
     Dates: start: 20061101, end: 20071002
  2. ZYLORIC [Suspect]
     Route: 048
  3. MICARDIS [Suspect]
     Route: 048
  4. CALBLOCK [Suspect]
     Route: 048

REACTIONS (2)
  - HEPATITIS ACUTE [None]
  - UVEITIS [None]
